FAERS Safety Report 6485867-8 (Version None)
Quarter: 2009Q4

REPORT INFORMATION
  Report Type: 
  Country: None (occurrence: None)
  Receive Date: 20091204
  Receipt Date: 20091118
  Transmission Date: 20100525
  Serious: Yes (Other)
  Sender: FDA-Public Use
  Company Number: 2009SP037445

PATIENT
  Age: 35 Year
  Sex: Female
  Weight: 63.5036 kg

DRUGS (1)
  1. IMPLANON [Suspect]
     Indication: CONTRACEPTION
     Dates: start: 20091006

REACTIONS (1)
  - CERVIX CARCINOMA [None]
